FAERS Safety Report 10978295 (Version 1)
Quarter: 2015Q1

REPORT INFORMATION
  Report Type: Spontaneous
  Country: US (occurrence: None)
  Receive Date: 20150226
  Receipt Date: 20150226
  Transmission Date: 20150721
  Serious: No
  Sender: FDA-Public Use
  Company Number: TPA2009A02523

PATIENT
  Age: 76 Year
  Sex: Female
  Weight: 74.84 kg

DRUGS (1)
  1. ULORIC [Suspect]
     Active Substance: FEBUXOSTAT
     Indication: GOUT
     Route: 048
     Dates: start: 200908

REACTIONS (2)
  - Rash papular [None]
  - Erythema [None]

NARRATIVE: CASE EVENT DATE: 200908
